FAERS Safety Report 5731239-0 (Version None)
Quarter: 2008Q2

REPORT INFORMATION
  Report Type: 
  Country: None (occurrence: None)
  Receive Date: 20080507
  Receipt Date: 20080410
  Transmission Date: 20081010
  Serious: No
  Sender: FDA-Public Use
  Company Number: US-BOEHRINGER INGELHEIM GMBH, GERMANY-2008-BP-05880BP

PATIENT
  Sex: Male

DRUGS (8)
  1. SPIRIVA [Suspect]
     Indication: CHRONIC OBSTRUCTIVE PULMONARY DISEASE
  2. SPIRIVA [Suspect]
     Indication: EMPHYSEMA
  3. LOMOTIL [Concomitant]
     Route: 048
  4. ADVAIR HFA [Concomitant]
     Indication: DYSPNOEA
  5. ALBUTEROL [Concomitant]
  6. ATROVENT [Concomitant]
     Indication: DYSPNOEA
  7. THEO-DUR [Concomitant]
  8. DYAZIDE [Concomitant]

REACTIONS (3)
  - ADVERSE DRUG REACTION [None]
  - ANXIETY [None]
  - NERVOUSNESS [None]
